FAERS Safety Report 5574068-3 (Version None)
Quarter: 2007Q4

REPORT INFORMATION
  Report Type: 
  Country: None (occurrence: None)
  Receive Date: 20071221
  Receipt Date: 20071206
  Transmission Date: 20080405
  Serious: Yes (Hospitalization)
  Sender: FDA-Public Use
  Company Number: S07-SWI-06348-01

PATIENT
  Age: 84 Year
  Sex: Female

DRUGS (8)
  1. ESCITALOPRAM [Suspect]
     Dosage: 10 MG QD PO
     Route: 048
  2. PLAVIX [Suspect]
     Dosage: 75 MG QD PO
     Route: 048
     Dates: end: 20071116
  3. IRBESARTAN [Concomitant]
  4. COTENOLOL [Concomitant]
  5. TRAZODONE HYDROCHLORIDE [Concomitant]
  6. LORAZEPAM [Concomitant]
  7. SIMCORA (SIMVASTATIN) [Concomitant]
  8. NEUROTIN (ACETYLCARNITINE) [Concomitant]

REACTIONS (3)
  - ANXIETY [None]
  - BLOOD PRESSURE SYSTOLIC INCREASED [None]
  - SUBDURAL HAEMATOMA [None]
